FAERS Safety Report 6237030-3 (Version None)
Quarter: 2009Q2

REPORT INFORMATION
  Report Type: 
  Country: None (occurrence: None)
  Receive Date: 20090619
  Receipt Date: 20090616
  Transmission Date: 20091009
  Serious: Yes (Death)
  Sender: FDA-Public Use
  Company Number: US-CELGENEUS-163-21880-09032097

PATIENT
  Sex: Male

DRUGS (6)
  1. REVLIMID [Suspect]
     Route: 048
     Dates: start: 20080101, end: 20080728
  2. REVLIMID [Suspect]
     Route: 048
     Dates: start: 20080101, end: 20080601
  3. REVLIMID [Suspect]
     Route: 048
     Dates: start: 20070101, end: 20080101
  4. REVLIMID [Suspect]
     Route: 048
     Dates: start: 20060901, end: 20061101
  5. REVLIMID [Suspect]
     Route: 048
     Dates: start: 20060501, end: 20060701
  6. REVLIMID [Suspect]
     Route: 048
     Dates: start: 20060128, end: 20060401

REACTIONS (5)
  - CARDIAC FAILURE CONGESTIVE [None]
  - DYSPNOEA [None]
  - FEELING ABNORMAL [None]
  - NEOPLASM PROGRESSION [None]
  - REFRACTORY ANAEMIA [None]
